FAERS Safety Report 20086036 (Version 2)
Quarter: 2021Q4

REPORT INFORMATION
  Report Type: Report from Study
  Country: CA (occurrence: CA)
  Receive Date: 20211118
  Receipt Date: 20211216
  Transmission Date: 20220303
  Serious: Yes (Death)
  Sender: FDA-Public Use
  Company Number: CA-NOVARTISPH-NVSC2021CA263029

PATIENT
  Age: 81 Year
  Sex: Male

DRUGS (2)
  1. BEOVU [Suspect]
     Active Substance: BROLUCIZUMAB-DBLL
     Indication: Neovascular age-related macular degeneration
     Dosage: UNK (4 MONTH ONCE)
     Route: 031
     Dates: start: 202106
  2. BEOVU [Suspect]
     Active Substance: BROLUCIZUMAB-DBLL
     Dosage: UNK (4 MONTH ONCE)
     Route: 031
     Dates: start: 20211014

REACTIONS (1)
  - Death [Fatal]

NARRATIVE: CASE EVENT DATE: 20211109
